FAERS Safety Report 14506062 (Version 2)
Quarter: 2018Q1

REPORT INFORMATION
  Report Type: Spontaneous
  Country: US (occurrence: US)
  Receive Date: 20180208
  Receipt Date: 20180228
  Transmission Date: 20180509
  Serious: Yes (Hospitalization)
  Sender: FDA-Public Use
  Company Number: US-TEVA-2018-US-855754

PATIENT
  Age: 68 Year
  Sex: Female

DRUGS (1)
  1. NOREPINEPHRINE. [Suspect]
     Active Substance: NOREPINEPHRINE
     Indication: OVERDOSE
     Route: 040

REACTIONS (2)
  - Overdose [Recovering/Resolving]
  - Stress cardiomyopathy [Recovering/Resolving]
